FAERS Safety Report 9788912 (Version 2)
Quarter: 2014Q2

REPORT INFORMATION
  Report Type: Report from Study
  Country: JP (occurrence: JP)
  Receive Date: 20131230
  Receipt Date: 20140421
  Transmission Date: 20141212
  Serious: Yes (Hospitalization)
  Sender: FDA-Public Use
  Company Number: JP-GLAXOSMITHKLINE-B0955753A

PATIENT
  Sex: Male
  Weight: 59 kg

DRUGS (9)
  1. VOTRIENT 200MG [Suspect]
     Indication: LEIOMYOSARCOMA
     Dosage: 800MG PER DAY
     Route: 048
     Dates: start: 20130129, end: 20130205
  2. VOTRIENT 200MG [Suspect]
     Indication: LEIOMYOSARCOMA
     Dosage: 600MG PER DAY
     Route: 048
     Dates: start: 20130206, end: 20130207
  3. VOTRIENT 200MG [Suspect]
     Indication: LEIOMYOSARCOMA
     Dosage: 400MG PER DAY
     Route: 048
     Dates: start: 20130208, end: 20130215
  4. VOTRIENT 200MG [Suspect]
     Indication: LEIOMYOSARCOMA
     Dosage: 400MG PER DAY
     Route: 048
     Dates: start: 20130308, end: 20130417
  5. WARFARIN [Suspect]
     Route: 048
  6. UREPEARL [Concomitant]
     Route: 061
  7. HIRUDOID [Concomitant]
     Route: 065
  8. GASTER [Concomitant]
     Indication: GASTRIC ULCER
     Route: 065
  9. NAFAMOSTAT [Concomitant]
     Indication: SEPSIS

REACTIONS (5)
  - Cholecystitis acute [Recovered/Resolved]
  - Diarrhoea [Recovering/Resolving]
  - Vitreous haemorrhage [Recovered/Resolved]
  - Gastric ulcer [Recovered/Resolved]
  - Sepsis [Recovered/Resolved]
